FAERS Safety Report 7877624-2 (Version None)
Quarter: 2011Q4

REPORT INFORMATION
  Report Type: 
  Country: None (occurrence: None)
  Receive Date: 20111031
  Receipt Date: 20111021
  Transmission Date: 20120403
  Serious: Yes (Other)
  Sender: FDA-Public Use
  Company Number: US-ASTRAZENECA-2011SE54164

PATIENT
  Age: 47 Year
  Sex: Male

DRUGS (4)
  1. SYMBICORT [Suspect]
     Indication: PNEUMOTHORAX
     Dosage: 160/4.5 MCG, BID
     Route: 055
     Dates: start: 20090101, end: 20100101
  2. SYMBICORT [Suspect]
     Dosage: 320/9 MCG, BID
     Route: 055
     Dates: start: 20100101
  3. SYMBICORT [Suspect]
     Dosage: 160/4.5 MCG, UP TO ONE EXTRA DOSE/PRN
     Route: 055
     Dates: start: 20090101, end: 20100101
  4. SYMBICORT [Suspect]
     Dosage: 320/9 MCG,  UP TO ONE EXTRA DOSE/PRN
     Route: 055
     Dates: start: 20100101

REACTIONS (7)
  - CHEST PAIN [None]
  - OFF LABEL USE [None]
  - DYSPNOEA [None]
  - VENOUS OCCLUSION [None]
  - TOTAL LUNG CAPACITY DECREASED [None]
  - ADVERSE EVENT [None]
  - DRUG DOSE OMISSION [None]
